FAERS Safety Report 19883430 (Version 1)
Quarter: 2021Q3

REPORT INFORMATION
  Report Type: Report from Study
  Country: None (occurrence: US)
  Receive Date: 20210926
  Receipt Date: 20210926
  Transmission Date: 20211014
  Serious: Yes (Hospitalization)
  Sender: FDA-Public Use
  Company Number: US-ABBVIE-21K-163-4092132-00

PATIENT
  Age: 78 Year
  Sex: Female

DRUGS (1)
  1. RINVOQ [Suspect]
     Active Substance: UPADACITINIB
     Indication: RHEUMATOID ARTHRITIS
     Route: 048
     Dates: start: 20210818, end: 20210821

REACTIONS (4)
  - Diarrhoea [Recovering/Resolving]
  - Loss of consciousness [Recovering/Resolving]
  - Adverse food reaction [Recovering/Resolving]
  - Salmonellosis [Unknown]

NARRATIVE: CASE EVENT DATE: 202108
